FAERS Safety Report 4680549-7 (Version None)
Quarter: 2005Q2

REPORT INFORMATION
  Report Type: 
  Country: None (occurrence: None)
  Receive Date: 20050602
  Receipt Date: 20050523
  Transmission Date: 20051028
  Serious: Yes (Death, Other)
  Sender: FDA-Public Use
  Company Number: TR-MERCK-0506USA00440

PATIENT
  Age: 7 Year
  Sex: Male

DRUGS (6)
  1. CANCIDAS [Suspect]
     Indication: ASPERGILLOSIS
     Route: 042
  2. VANCOMYCIN [Concomitant]
     Indication: BRAIN ABSCESS
     Route: 065
  3. CEFTRIAXONE SODIUM [Concomitant]
     Indication: BRAIN ABSCESS
     Route: 065
  4. METRONIDAZOLE [Concomitant]
     Indication: BRAIN ABSCESS
     Route: 065
  5. AMPHOTERICIN B [Concomitant]
     Indication: CD4 LYMPHOCYTES DECREASED
     Route: 065
  6. VORICONAZOLE [Concomitant]
     Route: 065

REACTIONS (6)
  - ASPERGILLOSIS [None]
  - DEATH [None]
  - DRUG INEFFECTIVE [None]
  - HEMIPLEGIA [None]
  - NEUROLOGICAL EXAMINATION ABNORMAL [None]
  - RENAL ABSCESS [None]
